FAERS Safety Report 8710257 (Version 2)
Quarter: 2013Q1

REPORT INFORMATION
  Report Type: Report from Study
  Country: CA (occurrence: CA)
  Receive Date: 20120807
  Receipt Date: 20130212
  Transmission Date: 20140127
  Serious: Yes (Other)
  Sender: FDA-Public Use
  Company Number: CA-BRISTOL-MYERS SQUIBB COMPANY-16828295

PATIENT
  Age: 48 Year
  Sex: Female
  Weight: 82 kg

DRUGS (4)
  1. ORENCIA [Suspect]
     Indication: RHEUMATOID ARTHRITIS
     Dosage: LAST INF:19JUL2012,NO OF INF:1?FREQ:4 WEEKS
     Route: 042
     Dates: start: 20120719, end: 20130111
  2. ARAVA [Concomitant]
  3. IBUPROFEN [Concomitant]
  4. TRIDURAL [Concomitant]

REACTIONS (2)
  - Thrombosis [Unknown]
  - Drug ineffective [Unknown]
